FAERS Safety Report 21819069 (Version 2)
Quarter: 2023Q1

REPORT INFORMATION
  Report Type: Spontaneous
  Country: IT (occurrence: IT)
  Receive Date: 20230104
  Receipt Date: 20230118
  Transmission Date: 20230418
  Serious: Yes (Other)
  Sender: FDA-Public Use
  Company Number: None

PATIENT
  Age: 66 Year
  Sex: Male

DRUGS (2)
  1. CARBOPLATIN [Suspect]
     Active Substance: CARBOPLATIN
     Indication: Lung neoplasm malignant
     Dosage: 420 MG
     Route: 042
     Dates: start: 20220811
  2. PEMBROLIZUMAB [Suspect]
     Active Substance: PEMBROLIZUMAB
     Indication: Lung neoplasm malignant
     Dosage: 200 MG
     Route: 042
     Dates: start: 20220811

REACTIONS (7)
  - Hypertriglyceridaemia [Recovering/Resolving]
  - Blood alkaline phosphatase increased [Unknown]
  - Hypertransaminasaemia [Recovering/Resolving]
  - Gamma-glutamyltransferase increased [Unknown]
  - Asthenia [Recovering/Resolving]
  - Nausea [Recovered/Resolved]
  - Vomiting [Recovered/Resolved]

NARRATIVE: CASE EVENT DATE: 20220812
